FAERS Safety Report 16691956 (Version 1)
Quarter: 2019Q3

REPORT INFORMATION
  Report Type: Spontaneous
  Country: US (occurrence: US)
  Receive Date: 20190812
  Receipt Date: 20190812
  Transmission Date: 20191004
  Serious: Yes (Other)
  Sender: FDA-Public Use
  Company Number: US-SUPERNUS PHARMACEUTICALS, INC.-2019SUP00398

PATIENT
  Age: 36 Year
  Sex: Female
  Weight: 94.79 kg

DRUGS (10)
  1. ^EYE MED^ [Concomitant]
  2. OXTELLAR XR [Suspect]
     Active Substance: OXCARBAZEPINE
     Indication: SEIZURE
     Dosage: 600 MG, 1X/DAY
     Route: 048
     Dates: start: 201903, end: 201907
  3. ACYLCOVIR [Concomitant]
  4. DEXILANT [Concomitant]
     Active Substance: DEXLANSOPRAZOLE
  5. L-LYSINE [Concomitant]
     Active Substance: LYSINE
  6. MEYTHYLFOLATE [Concomitant]
  7. OXTELLAR XR [Suspect]
     Active Substance: OXCARBAZEPINE
     Indication: NEUROPATHY PERIPHERAL
     Dosage: 1200 MG, 1X/DAY
     Route: 048
     Dates: start: 201907
  8. B6 [Concomitant]
     Active Substance: PYRIDOXINE HYDROCHLORIDE
  9. VITAMIN B12 [Concomitant]
     Active Substance: CYANOCOBALAMIN
  10. VITAMIN D [Concomitant]
     Active Substance: VITAMIN D NOS

REACTIONS (10)
  - Drug ineffective [Recovered/Resolved]
  - Pyrexia [Recovered/Resolved]
  - Nausea [Not Recovered/Not Resolved]
  - Hypoaesthesia [Recovered/Resolved]
  - Unevaluable event [Recovered/Resolved]
  - Vomiting [Recovered/Resolved]
  - Dehydration [Recovered/Resolved]
  - Arthropod sting [Recovering/Resolving]
  - Pain [Recovering/Resolving]
  - Liver function test increased [Unknown]

NARRATIVE: CASE EVENT DATE: 201903
